FAERS Safety Report 6642395-4 (Version None)
Quarter: 2010Q1

REPORT INFORMATION
  Report Type: 
  Country: None (occurrence: None)
  Receive Date: 20100319
  Receipt Date: 20100312
  Transmission Date: 20100710
  Serious: Yes (Other)
  Sender: FDA-Public Use
  Company Number: AU-ROCHE-690979

PATIENT

DRUGS (3)
  1. CAPECITABINE [Suspect]
     Indication: DRUG USE FOR UNKNOWN INDICATION
     Route: 048
     Dates: start: 20091018
  2. CAPECITABINE [Suspect]
     Route: 048
     Dates: start: 20100118
  3. CAPECITABINE [Suspect]
     Route: 048

REACTIONS (4)
  - CONFUSIONAL STATE [None]
  - DELIRIUM [None]
  - DISORIENTATION [None]
  - UNRESPONSIVE TO STIMULI [None]
